FAERS Safety Report 8806641 (Version 4)
Quarter: 2013Q4

REPORT INFORMATION
  Report Type: Spontaneous
  Country: US (occurrence: US)
  Receive Date: 20120925
  Receipt Date: 20131004
  Transmission Date: 20140711
  Serious: No
  Sender: FDA-Public Use
  Company Number: US-JNJFOC-20120900521

PATIENT
  Age: 52 Year
  Sex: Female

DRUGS (1)
  1. INVEGA SUSTENNA [Suspect]
     Indication: PRODUCT USED FOR UNKNOWN INDICATION
     Route: 030

REACTIONS (3)
  - Drug dose omission [Unknown]
  - Device leakage [Unknown]
  - Device malfunction [Unknown]
